FAERS Safety Report 12115128 (Version 1)
Quarter: 2016Q1

REPORT INFORMATION
  Report Type: Spontaneous
  Country: IE (occurrence: IE)
  Receive Date: 20160225
  Receipt Date: 20160225
  Transmission Date: 20160526
  Serious: Yes (Other)
  Sender: FDA-Public Use
  Company Number: IE-JNJFOC-20160220349

PATIENT

DRUGS (1)
  1. XEPLION [Suspect]
     Active Substance: PALIPERIDONE PALMITATE
     Indication: SCHIZOAFFECTIVE DISORDER
     Dosage: LOADING DOSE
     Route: 030
     Dates: end: 2014

REACTIONS (4)
  - Off label use [Unknown]
  - Aggression [Unknown]
  - Agitation [Unknown]
  - Product use issue [Unknown]

NARRATIVE: CASE EVENT DATE: 2014
